FAERS Safety Report 12954751 (Version 1)
Quarter: 2016Q4

REPORT INFORMATION
  Report Type: Spontaneous
  Country: MX (occurrence: MX)
  Receive Date: 20161118
  Receipt Date: 20161118
  Transmission Date: 20170207
  Serious: Yes (Death, Other)
  Sender: FDA-Public Use
  Company Number: MX-AMGEN-MEXSP2016150300

PATIENT
  Age: 24 Year
  Sex: Male
  Weight: 93 kg

DRUGS (4)
  1. BLINCYTO [Suspect]
     Active Substance: BLINATUMOMAB
     Dosage: 18 MUG, QD
     Route: 065
     Dates: start: 201611
  2. BLINCYTO [Suspect]
     Active Substance: BLINATUMOMAB
     Indication: ACUTE LYMPHOCYTIC LEUKAEMIA RECURRENT
     Dosage: 9 MUG, CONTINUING
     Route: 065
     Dates: start: 20161018
  3. BLINCYTO [Suspect]
     Active Substance: BLINATUMOMAB
     Dosage: 28 MUG, QD
     Route: 065
     Dates: start: 20161115
  4. BLINCYTO [Suspect]
     Active Substance: BLINATUMOMAB
     Dosage: 9 MUG, QD
     Route: 065
     Dates: start: 20161110

REACTIONS (8)
  - Neurotoxicity [Recovering/Resolving]
  - Respiratory distress [Recovering/Resolving]
  - Pneumonia [Fatal]
  - Cytokine release syndrome [Recovering/Resolving]
  - Leukocytosis [Recovering/Resolving]
  - Cardiac failure [Fatal]
  - Pyrexia [Unknown]
  - Fluid retention [Recovering/Resolving]

NARRATIVE: CASE EVENT DATE: 20161103
